FAERS Safety Report 4862243-2 (Version None)
Quarter: 2005Q4

REPORT INFORMATION
  Report Type: 
  Country: None (occurrence: None)
  Receive Date: 20051130
  Receipt Date: 20050517
  Transmission Date: 20060501
  Serious: Yes (Hospitalization)
  Sender: FDA-Public Use
  Company Number: BDI-007202

PATIENT
  Age: 59 Year
  Sex: Male

DRUGS (2)
  1. ISOVUE-370 [Suspect]
     Indication: CATHETERISATION CARDIAC
     Dosage: 150 ML ONCE IA
     Dates: start: 20050517, end: 20050517
  2. ISOVUE-370 [Suspect]
     Indication: CORONARY ARTERY DISEASE
     Dosage: 150 ML ONCE IA
     Dates: start: 20050517, end: 20050517

REACTIONS (6)
  - BLOOD PRESSURE DECREASED [None]
  - CONTRAST MEDIA REACTION [None]
  - FEELING HOT [None]
  - HEART RATE INCREASED [None]
  - RASH ERYTHEMATOUS [None]
  - SKIN DISCOLOURATION [None]
